FAERS Safety Report 5024243-1 (Version None)
Quarter: 2006Q2

REPORT INFORMATION
  Report Type: 
  Country: None (occurrence: None)
  Receive Date: 20060607
  Receipt Date: 20060525
  Transmission Date: 20061013
  Serious: Yes (Other)
  Sender: FDA-Public Use
  Company Number: 225347

PATIENT
  Age: 79 Year
  Sex: Female
  Weight: 50 kg

DRUGS (4)
  1. MABTHERA (RITUXIMAB) CONC FOR SOLUTION FOR INFUSION [Suspect]
     Dosage: 1000 MG, SINGLE, IV BOLUS
     Route: 042
     Dates: start: 20060515, end: 20060515
  2. ZOLMITRIPTAN (ZOLMITRIPTAN) [Concomitant]
  3. PIRITON CHLORPHENIRAMINE MALEATE [Concomitant]
  4. METHYLPREDNISOLONE SODIUM SUCCINATE [Concomitant]

REACTIONS (2)
  - ANAPHYLACTIC REACTION [None]
  - URTICARIA GENERALISED [None]
